FAERS Safety Report 7413139-3 (Version None)
Quarter: 2011Q2

REPORT INFORMATION
  Report Type: 
  Country: None (occurrence: None)
  Receive Date: 20110413
  Receipt Date: 20110401
  Transmission Date: 20111010
  Serious: Yes (Other)
  Sender: FDA-Public Use
  Company Number: CA-JNJFOC-20110402997

PATIENT
  Age: 83 Year
  Sex: Female
  Weight: 40.82 kg

DRUGS (3)
  1. PEPCID AC [Suspect]
     Route: 048
  2. ACETYLSALICYLIC ACID SRT [Interacting]
     Indication: DYSPEPSIA
  3. PEPCID AC [Suspect]
     Indication: DYSPEPSIA
     Route: 048

REACTIONS (4)
  - DRUG INTERACTION [None]
  - SYNCOPE [None]
  - FALL [None]
  - ASTHENIA [None]
